FAERS Safety Report 12288601 (Version 1)
Quarter: 2016Q2

REPORT INFORMATION
  Report Type: Spontaneous
  Country: IT (occurrence: IT)
  Receive Date: 20160421
  Receipt Date: 20160421
  Transmission Date: 20160815
  Serious: Yes (Other)
  Sender: FDA-Public Use
  Company Number: IT-HOSPIRA-3246034

PATIENT
  Age: 22 Year
  Sex: Female

DRUGS (5)
  1. CEFAZOLIN [Suspect]
     Active Substance: CEFAZOLIN
     Indication: PROPHYLAXIS
     Route: 042
  2. ZYRTEC [Concomitant]
     Active Substance: CETIRIZINE HYDROCHLORIDE
     Indication: PROPHYLAXIS
  3. CLEXANE [Concomitant]
     Active Substance: ENOXAPARIN SODIUM
     Indication: PRODUCT USED FOR UNKNOWN INDICATION
     Route: 058
     Dates: start: 20160404, end: 20160405
  4. RANITIDINE. [Concomitant]
     Active Substance: RANITIDINE
     Indication: PROPHYLAXIS
  5. DELTACORTENE [Concomitant]
     Active Substance: PREDNISONE
     Indication: PROPHYLAXIS

REACTIONS (3)
  - Hypotension [Recovered/Resolved]
  - Nausea [Recovered/Resolved]
  - Vertigo [Recovered/Resolved]

NARRATIVE: CASE EVENT DATE: 20160405
